FAERS Safety Report 5059795-9 (Version None)
Quarter: 2006Q3

REPORT INFORMATION
  Report Type: 
  Country: None (occurrence: None)
  Receive Date: 20060724
  Receipt Date: 20060518
  Transmission Date: 20061208
  Serious: Yes (Hospitalization)
  Sender: FDA-Public Use
  Company Number: JP-JPN-A200601615

PATIENT
  Age: 66 Year
  Sex: Female
  Weight: 43 kg

DRUGS (16)
  1. VALTREX [Suspect]
     Indication: HERPES ZOSTER
     Dosage: 1000MG PER DAY
     Route: 048
     Dates: start: 20060516, end: 20060517
  2. ARASENA-A [Concomitant]
     Indication: HERPES ZOSTER
     Dosage: 1G THREE TIMES PER DAY
     Route: 061
     Dates: start: 20060513, end: 20060515
  3. NORVASC [Concomitant]
     Indication: HYPERTENSION
     Dosage: 10MG PER DAY
     Route: 048
     Dates: start: 20041230
  4. ADALAT [Concomitant]
     Dosage: 3 PER DAY
     Route: 048
  5. BLOPRESS [Concomitant]
     Indication: HYPERTENSION
     Dosage: 4MG TWICE PER DAY
     Route: 048
     Dates: start: 20041230
  6. ALTAT [Concomitant]
     Indication: GASTRITIS
     Route: 048
  7. TANKARU [Concomitant]
     Indication: HYPERPARATHYROIDISM
     Dosage: 1500MG PER DAY
     Route: 048
     Dates: start: 20041230
  8. JAPANESE MEDICATION [Concomitant]
     Dosage: 15MCG PER DAY
     Route: 048
     Dates: start: 20041230
  9. RAMITALATE L [Concomitant]
     Indication: HYPERTENSION
     Dosage: 60MG PER DAY
     Route: 048
     Dates: start: 20041230
  10. ANPLAG [Concomitant]
     Dosage: 150MG PER DAY
     Route: 048
     Dates: start: 20041230
  11. PANALDINE [Concomitant]
     Dosage: 200MG PER DAY
     Route: 048
     Dates: start: 20041230
  12. ALLELOCK [Concomitant]
     Indication: DERMATITIS
     Dosage: 10MG PER DAY
     Route: 048
     Dates: start: 20041230
  13. FUROSEMIDE [Concomitant]
     Dosage: 40MG PER DAY
     Route: 048
     Dates: start: 20041230
  14. ANZIEF [Concomitant]
     Dosage: 50MG PER DAY
     Route: 048
     Dates: start: 20041230
  15. ARTIST [Concomitant]
     Indication: HYPERTENSION
     Dosage: 5MG PER DAY
     Route: 048
     Dates: start: 20041230
  16. UNKNOWN DRUG [Concomitant]
     Indication: HYPERTENSION
     Dosage: 15MCG PER DAY
     Route: 048
     Dates: start: 20041230

REACTIONS (12)
  - ABASIA [None]
  - ABDOMINAL DISCOMFORT [None]
  - ANOREXIA [None]
  - DISORIENTATION [None]
  - DIZZINESS [None]
  - DYSARTHRIA [None]
  - FEELING ABNORMAL [None]
  - HEADACHE [None]
  - HYPERTENSION [None]
  - HYPOAESTHESIA ORAL [None]
  - NERVOUS SYSTEM DISORDER [None]
  - RESTLESSNESS [None]
